FAERS Safety Report 9962005 (Version 1)
Quarter: 2014Q1

REPORT INFORMATION
  Report Type: Report from Study
  Country: US (occurrence: US)
  Receive Date: 20140305
  Receipt Date: 20140305
  Transmission Date: 20141002
  Serious: No
  Sender: FDA-Public Use
  Company Number: US-ABBVIE-13P-163-1114518-00

PATIENT
  Age: 40 Year
  Sex: Female

DRUGS (5)
  1. HUMIRA [Suspect]
     Indication: CROHN^S DISEASE
     Dates: start: 20130222, end: 20130222
  2. HUMIRA [Suspect]
     Dates: start: 20130308, end: 20130308
  3. HUMIRA [Suspect]
     Dates: start: 20130322
  4. OSTEOPOROSIS MEDICATION [Concomitant]
     Indication: OSTEOPOROSIS
  5. LUPUS MEDICATION [Concomitant]
     Indication: PRODUCT USED FOR UNKNOWN INDICATION

REACTIONS (2)
  - Injection site bruising [Not Recovered/Not Resolved]
  - Injection site pain [Recovered/Resolved]
